FAERS Safety Report 8049586-9 (Version None)
Quarter: 2012Q1

REPORT INFORMATION
  Report Type: 
  Country: None (occurrence: None)
  Receive Date: 20120111
  Receipt Date: 20110722
  Transmission Date: 20120608
  Serious: No
  Sender: FDA-Public Use
  Company Number: AEUSA201100201

PATIENT
  Sex: Female

DRUGS (1)
  1. HYPERTET [Suspect]
     Indication: TETANUS IMMUNISATION
     Dosage: 1X;IM
     Route: 030
     Dates: start: 20110719, end: 20110719

REACTIONS (3)
  - INJECTION SITE HAEMORRHAGE [None]
  - WRONG TECHNIQUE IN DRUG USAGE PROCESS [None]
  - INJECTION SITE DISCOLOURATION [None]
